FAERS Safety Report 7888613-6 (Version None)
Quarter: 2011Q4

REPORT INFORMATION
  Report Type: 
  Country: None (occurrence: None)
  Receive Date: 20111103
  Receipt Date: 20111026
  Transmission Date: 20120403
  Serious: Yes (Hospitalization)
  Sender: FDA-Public Use
  Company Number: DE-ROCHE-1007657

PATIENT
  Sex: Female
  Weight: 99 kg

DRUGS (4)
  1. FLUOROURACIL [Concomitant]
     Indication: RECTAL CANCER
     Route: 042
     Dates: start: 20110329, end: 20111004
  2. LEUCOVORIN CALCIUM [Concomitant]
     Indication: RECTAL CANCER
     Route: 042
     Dates: start: 20110329, end: 20111004
  3. AVASTIN [Suspect]
     Indication: RECTAL CANCER
     Route: 042
     Dates: start: 20110329, end: 20111004
  4. IRINOTECAN HCL [Concomitant]
     Indication: RECTAL CANCER
     Route: 042
     Dates: start: 20110329, end: 20111004

REACTIONS (2)
  - PNEUMONIA PRIMARY ATYPICAL [None]
  - RESPIRATORY FAILURE [None]
